FAERS Safety Report 5658314-3 (Version None)
Quarter: 2008Q1

REPORT INFORMATION
  Report Type: 
  Country: None (occurrence: None)
  Receive Date: 20080310
  Receipt Date: 20070307
  Transmission Date: 20080703
  Serious: No
  Sender: FDA-Public Use
  Company Number: US-BAYER-200710286BCC

PATIENT
  Age: 87 Year
  Sex: Female
  Weight: 48 kg

DRUGS (7)
  1. ALEVE (CAPLET) [Suspect]
     Indication: ARTHRALGIA
     Dosage: TOTAL DAILY DOSE: 220 MG  UNIT DOSE: 220 MG
     Route: 048
     Dates: start: 20070120, end: 20070123
  2. ATENOLOL [Concomitant]
     Dosage: TOTAL DAILY DOSE: 0.25 MG  UNIT DOSE: 0.25 MG
     Route: 048
  3. NORVASC [Concomitant]
     Dosage: AS USED: 5 MG  UNIT DOSE: 5 MG
     Route: 048
  4. DIOVAN [Concomitant]
     Dosage: AS USED: 160 MG  UNIT DOSE: 160 MG
     Route: 048
  5. CENTRUM SILVER [Concomitant]
  6. ST JOSHEPHS 81 MG [Concomitant]
  7. FOSAMAX [Concomitant]

REACTIONS (3)
  - AGITATION [None]
  - BLOOD PRESSURE INCREASED [None]
  - INITIAL INSOMNIA [None]
